FAERS Safety Report 17785409 (Version 3)
Quarter: 2020Q3

REPORT INFORMATION
  Report Type: Report from Study
  Country: US (occurrence: US)
  Receive Date: 20200514
  Receipt Date: 20200902
  Transmission Date: 20201102
  Serious: Yes (Death, Life-Threatening, Hospitalization, Disabling)
  Sender: FDA-Public Use
  Company Number: US-SA-2020SA104835

PATIENT

DRUGS (14)
  1. SARILUMAB [Suspect]
     Active Substance: SARILUMAB
     Dosage: 400 MG, SINGLE, 1X
     Route: 042
     Dates: start: 20200413, end: 20200413
  2. HYDROXYCHLOROQUINE [Concomitant]
     Active Substance: HYDROXYCHLOROQUINE
     Indication: COVID-19
     Dosage: 400 MG, QD
     Route: 048
     Dates: start: 20200404, end: 20200409
  3. AZITHROMYCIN ANHYDROUS. [Concomitant]
     Active Substance: AZITHROMYCIN ANHYDROUS
     Dosage: 250 MG, QD
     Route: 042
     Dates: start: 20200409, end: 20200410
  4. HYDROCORTISONE SODIUM SUCCINATE [Concomitant]
     Active Substance: HYDROCORTISONE SODIUM SUCCINATE
     Indication: COVID-19
  5. VANCOMYCIN [Concomitant]
     Active Substance: VANCOMYCIN
     Indication: COVID-19
     Dosage: 1250 MG, BID
     Route: 042
     Dates: start: 20200414, end: 20200415
  6. HYDROCORTISONE SODIUM SUCCINATE [Concomitant]
     Active Substance: HYDROCORTISONE SODIUM SUCCINATE
     Indication: RESPIRATORY FAILURE
     Dosage: 100 MG, TID
     Route: 042
     Dates: start: 20200414, end: 20200415
  7. FENTANYL. [Concomitant]
     Active Substance: FENTANYL
     Indication: SEDATION
     Dosage: 1000 MG, CONTINUUS INFUSION
     Route: 042
     Dates: start: 20200407, end: 20200508
  8. SARILUMAB [Suspect]
     Active Substance: SARILUMAB
     Indication: COVID-19
     Dosage: 400 MG, SINGLE
     Route: 042
     Dates: start: 20200407, end: 20200407
  9. SARILUMAB [Suspect]
     Active Substance: SARILUMAB
     Dosage: 400 MG, SINGLE, 1X
     Route: 042
     Dates: start: 20200420, end: 20200420
  10. SARILUMAB [Suspect]
     Active Substance: SARILUMAB
     Dosage: 400 MG, 1X
     Route: 042
     Dates: start: 20200426, end: 20200426
  11. VANCOMYCIN [Concomitant]
     Active Substance: VANCOMYCIN
     Indication: PNEUMONIA
     Dosage: 1500 MG, BID
     Route: 042
     Dates: start: 20200416, end: 20200421
  12. AZITHROMYCIN ANHYDROUS. [Concomitant]
     Active Substance: AZITHROMYCIN ANHYDROUS
     Indication: COVID-19
     Dosage: 500 MG, QD
     Route: 042
     Dates: start: 20200404, end: 20200404
  13. CEFTRIAXONE. [Concomitant]
     Active Substance: CEFTRIAXONE
     Indication: COVID-19
     Dosage: 1000 MG, QD
     Route: 042
     Dates: start: 20200404, end: 20200406
  14. ZOSYN [Concomitant]
     Active Substance: PIPERACILLIN SODIUM\TAZOBACTAM SODIUM
     Indication: COVID-19
     Dosage: 4.5 G, QD
     Route: 042
     Dates: start: 20200420, end: 20200422

REACTIONS (6)
  - Deep vein thrombosis [Not Recovered/Not Resolved]
  - COVID-19 [Fatal]
  - Bacteraemia [Recovered/Resolved]
  - Hypotension [Recovered/Resolved]
  - Septic shock [Not Recovered/Not Resolved]
  - Gastrointestinal haemorrhage [Recovered/Resolved]

NARRATIVE: CASE EVENT DATE: 20200407
